FAERS Safety Report 24466097 (Version 1)
Quarter: 2024Q4

REPORT INFORMATION
  Report Type: Report from Study
  Country: US (occurrence: US)
  Receive Date: 20241018
  Receipt Date: 20241018
  Transmission Date: 20250115
  Serious: No
  Sender: ROCHE
  Company Number: US-ROCHE-3536992

PATIENT
  Age: 70 Year
  Sex: Male

DRUGS (7)
  1. XOLAIR [Suspect]
     Active Substance: OMALIZUMAB
     Indication: Mechanical urticaria
     Route: 058
     Dates: start: 201905
  2. XOLAIR [Suspect]
     Active Substance: OMALIZUMAB
     Indication: Nasal polyps
  3. XOLAIR [Suspect]
     Active Substance: OMALIZUMAB
     Indication: Asthma
  4. MONTELUKAST [Concomitant]
     Active Substance: MONTELUKAST
  5. FLUTICASONE [Concomitant]
     Active Substance: FLUTICASONE
  6. SALMETEROL [Concomitant]
     Active Substance: SALMETEROL
  7. XYZAL [Concomitant]
     Active Substance: LEVOCETIRIZINE DIHYDROCHLORIDE

REACTIONS (1)
  - Confusional state [Unknown]
